FAERS Safety Report 10181177 (Version 2)
Quarter: 2014Q2

REPORT INFORMATION
  Report Type: Spontaneous
  Country: US (occurrence: US)
  Receive Date: 20140519
  Receipt Date: 20140519
  Transmission Date: 20141212
  Serious: No
  Sender: FDA-Public Use
  Company Number: US-AMGEN INC.-USASP2014021330

PATIENT
  Age: 34 Year
  Sex: Male
  Weight: 98.41 kg

DRUGS (10)
  1. PROLIA [Suspect]
     Indication: OSTEOPOROSIS
     Dosage: 60 UNK, Q6MO
     Route: 058
     Dates: start: 20130207
  2. PROLIA [Suspect]
     Route: 058
  3. PROLIA [Suspect]
     Route: 058
  4. ANDROGEL [Concomitant]
     Indication: BLOOD TESTOSTERONE
     Dosage: 20.25, QD
     Route: 061
     Dates: start: 2005
  5. COREG [Concomitant]
     Indication: CORONARY ARTERY DISEASE
     Dosage: 3.125, QD
     Route: 048
     Dates: start: 2009
  6. FUROSEMIDE [Concomitant]
     Indication: CORONARY ARTERY DISEASE
     Dosage: 20 M, QD
     Route: 048
     Dates: start: 2005
  7. LOFIBRA                            /00465701/ [Concomitant]
     Indication: BLOOD CHOLESTEROL
     Dosage: 160 MG, QD
     Route: 048
     Dates: start: 2010
  8. OMEPRAZOLE [Concomitant]
     Dosage: 20 MG, QD
     Route: 048
     Dates: start: 2009
  9. RAMIPRIL [Concomitant]
     Indication: CORONARY ARTERY DISEASE
     Dosage: 10 MG, BID
     Route: 048
     Dates: start: 2010
  10. ZOVIRAX                            /00587301/ [Concomitant]
     Dosage: 400 MG, AS NECESSARY
     Route: 048
     Dates: start: 2005

REACTIONS (1)
  - Arthralgia [Not Recovered/Not Resolved]
